FAERS Safety Report 19778519 (Version 1)
Quarter: 2021Q3

REPORT INFORMATION
  Report Type: Spontaneous
  Country: FR (occurrence: FR)
  Receive Date: 20210902
  Receipt Date: 20210902
  Transmission Date: 20211014
  Serious: Yes (Hospitalization)
  Sender: FDA-Public Use
  Company Number: NVSC2021FR196996

PATIENT
  Age: 79 Year
  Sex: Female
  Weight: 62 kg

DRUGS (1)
  1. LETROZOLE. [Suspect]
     Active Substance: LETROZOLE
     Indication: BREAST CANCER
     Dosage: UNK
     Route: 048
     Dates: start: 202011, end: 202102

REACTIONS (2)
  - Pancreatitis acute [Recovered/Resolved]
  - Mixed liver injury [Recovered/Resolved]

NARRATIVE: CASE EVENT DATE: 202102
